FAERS Safety Report 8480067-4 (Version None)
Quarter: 2012Q2

REPORT INFORMATION
  Report Type: 
  Country: None (occurrence: None)
  Receive Date: 20120629
  Receipt Date: 20120625
  Transmission Date: 20120825
  Serious: No
  Sender: FDA-Public Use
  Company Number: US-PFIZER INC-2012152544

PATIENT
  Sex: Male
  Weight: 75.283 kg

DRUGS (5)
  1. TIMOLOL [Concomitant]
     Dosage: UNK, TWO TIMES A DAY IN BOTH EYES
  2. ALPHAGAN [Concomitant]
     Dosage: UNK, TWO TIMES A DAY IN BOTH EYES
  3. PREDNISOLONE [Concomitant]
     Dosage: UNK, THREE TIMES A DAY IN RIGHT EYE
  4. FLUOROMETHOLONE [Concomitant]
     Dosage: UNK, ONCE A DAY IN LEFT EYE
  5. PHOSPHOLINE IODIDE [Suspect]
     Indication: GLAUCOMA
     Dosage: 1 GTT, TWO TIMES A DAY IN LEFT EYE
     Route: 047
     Dates: start: 20120101

REACTIONS (6)
  - FLATULENCE [None]
  - ERUCTATION [None]
  - ABDOMINAL PAIN [None]
  - CONSTIPATION [None]
  - GASTROINTESTINAL DISORDER [None]
  - DIARRHOEA [None]
